FAERS Safety Report 17968748 (Version 3)
Quarter: 2020Q3

REPORT INFORMATION
  Report Type: Report from Study
  Country: US (occurrence: US)
  Receive Date: 20200701
  Receipt Date: 20200929
  Transmission Date: 20201103
  Serious: Yes (Other)
  Sender: FDA-Public Use
  Company Number: US-SA-2020SA168368

PATIENT

DRUGS (2)
  1. XTANDI [Suspect]
     Active Substance: ENZALUTAMIDE
     Indication: PROSTATE CANCER STAGE IV
     Dosage: 160 MG, QD
     Route: 048
     Dates: start: 20200202
  2. TAMSULOSIN HYDROCHLORIDE. [Suspect]
     Active Substance: TAMSULOSIN HYDROCHLORIDE
     Indication: PROSTATOMEGALY
     Dosage: 0.4 MG; AT BEDTINE;CAPSULE
     Route: 048

REACTIONS (5)
  - Diarrhoea [Unknown]
  - Syncope [Recovered/Resolved]
  - Pruritus [Unknown]
  - Lethargy [Unknown]
  - Nausea [Unknown]
